FAERS Safety Report 25438175 (Version 1)
Quarter: 2025Q2

REPORT INFORMATION
  Report Type: Spontaneous
  Country: AU (occurrence: AU)
  Receive Date: 20250616
  Receipt Date: 20250616
  Transmission Date: 20250717
  Serious: Yes (Other)
  Sender: TAKEDA
  Company Number: AU-TAKEDA-2025TUS053744

PATIENT
  Age: 41 Year
  Sex: Female

DRUGS (1)
  1. VYVANSE [Suspect]
     Active Substance: LISDEXAMFETAMINE DIMESYLATE
     Indication: Attention deficit hyperactivity disorder

REACTIONS (6)
  - Binge eating [Unknown]
  - Bruxism [Unknown]
  - Condition aggravated [Unknown]
  - Dermatillomania [Unknown]
  - Emotional disorder [Unknown]
  - Therapeutic response decreased [Not Recovered/Not Resolved]
